FAERS Safety Report 19599590 (Version 1)
Quarter: 2021Q3

REPORT INFORMATION
  Report Type: Spontaneous
  Country: CN (occurrence: CN)
  Receive Date: 20210722
  Receipt Date: 20210722
  Transmission Date: 20211014
  Serious: Yes (Hospitalization, Other)
  Sender: FDA-Public Use
  Company Number: CN-PFIZER INC-2021862918

PATIENT
  Age: 31 Year
  Sex: Female
  Weight: 59.9 kg

DRUGS (2)
  1. CYTOTEC [Suspect]
     Active Substance: MISOPROSTOL
     Indication: CAESAREAN SECTION
  2. CYTOTEC [Suspect]
     Active Substance: MISOPROSTOL
     Indication: UTERINE LEIOMYOMA
     Dosage: 200 UG, 3X/DAY
     Route: 048
     Dates: start: 20210702, end: 20210704

REACTIONS (4)
  - Pyrexia [Recovered/Resolved]
  - Off label use [Unknown]
  - Heart rate increased [Recovered/Resolved]
  - Vaginal haemorrhage [Unknown]

NARRATIVE: CASE EVENT DATE: 20210702
